FAERS Safety Report 14011236 (Version 4)
Quarter: 2018Q4

REPORT INFORMATION
  Report Type: Spontaneous
  Country: US (occurrence: US)
  Receive Date: 20170926
  Receipt Date: 20181211
  Transmission Date: 20190204
  Serious: Yes (Death, Hospitalization, Other)
  Sender: FDA-Public Use
  Company Number: US-ASTRAZENECA-2017SE95895

PATIENT
  Age: 1006 Month
  Sex: Female

DRUGS (29)
  1. NEXIUM [Suspect]
     Active Substance: ESOMEPRAZOLE MAGNESIUM
     Indication: GASTROOESOPHAGEAL REFLUX DISEASE
     Route: 048
     Dates: start: 2011, end: 2015
  2. LEVOXYL [Concomitant]
     Active Substance: LEVOTHYROXINE SODIUM
  3. HYDROMORPHONE [Concomitant]
     Active Substance: HYDROMORPHONE
     Route: 048
  4. MENTHOL. [Concomitant]
     Active Substance: MENTHOL
     Route: 061
  5. NEXIUM [Suspect]
     Active Substance: ESOMEPRAZOLE MAGNESIUM
     Indication: GASTROOESOPHAGEAL REFLUX DISEASE
     Route: 065
     Dates: start: 2007
  6. NEXIUM [Suspect]
     Active Substance: ESOMEPRAZOLE MAGNESIUM
     Indication: GASTROOESOPHAGEAL REFLUX DISEASE
     Route: 048
     Dates: start: 2014
  7. NEXIUM [Suspect]
     Active Substance: ESOMEPRAZOLE MAGNESIUM
     Indication: GASTROOESOPHAGEAL REFLUX DISEASE
     Dosage: GENERIC
     Route: 065
     Dates: start: 201505
  8. LASIX [Concomitant]
     Active Substance: FUROSEMIDE
  9. AZOR [Concomitant]
     Active Substance: AMLODIPINE BESYLATE\OLMESARTAN MEDOXOMIL
  10. PLAVIX [Concomitant]
     Active Substance: CLOPIDOGREL BISULFATE
  11. METOPROLOL. [Concomitant]
     Active Substance: METOPROLOL
     Route: 048
  12. NEXIUM [Suspect]
     Active Substance: ESOMEPRAZOLE MAGNESIUM
     Indication: GASTROOESOPHAGEAL REFLUX DISEASE
     Dosage: GENERIC
     Route: 065
     Dates: start: 201505
  13. LORATADINE. [Concomitant]
     Active Substance: LORATADINE
     Route: 048
  14. NEXIUM [Suspect]
     Active Substance: ESOMEPRAZOLE MAGNESIUM
     Indication: GASTROOESOPHAGEAL REFLUX DISEASE
     Route: 065
     Dates: start: 2007
  15. NEXIUM [Suspect]
     Active Substance: ESOMEPRAZOLE MAGNESIUM
     Indication: GASTROOESOPHAGEAL REFLUX DISEASE
     Route: 048
     Dates: start: 2014
  16. ALLOPURINOL. [Concomitant]
     Active Substance: ALLOPURINOL
  17. FLUTICASONE. [Concomitant]
     Active Substance: FLUTICASONE
     Route: 065
  18. DIGOXIN. [Concomitant]
     Active Substance: DIGOXIN
     Route: 048
  19. GUAIFENESIN. [Concomitant]
     Active Substance: GUAIFENESIN
     Route: 048
  20. ISOSORBIDE. [Concomitant]
     Active Substance: ISOSORBIDE
     Dosage: 20 MG-37.5 MG
     Route: 048
  21. NEXIUM [Suspect]
     Active Substance: ESOMEPRAZOLE MAGNESIUM
     Indication: GASTROOESOPHAGEAL REFLUX DISEASE
     Route: 048
     Dates: start: 2011, end: 2015
  22. PREDNISONE. [Concomitant]
     Active Substance: PREDNISONE
  23. BUMETANIDE. [Concomitant]
     Active Substance: BUMETANIDE
     Route: 048
  24. KEFLEX [Concomitant]
     Active Substance: CEPHALEXIN
  25. ACIPHEX [Concomitant]
     Active Substance: RABEPRAZOLE SODIUM
  26. CLONIDINE. [Concomitant]
     Active Substance: CLONIDINE
  27. ACETAMINOPHEN. [Concomitant]
     Active Substance: ACETAMINOPHEN
     Route: 048
  28. BENZONATATE. [Concomitant]
     Active Substance: BENZONATATE
     Route: 048
  29. METOLAZONE. [Concomitant]
     Active Substance: METOLAZONE
     Route: 048

REACTIONS (8)
  - Chronic kidney disease [Unknown]
  - Respiratory arrest [Unknown]
  - Cardio-respiratory arrest [Fatal]
  - Acute kidney injury [Unknown]
  - Pneumonia [Unknown]
  - Renal failure [Fatal]
  - Multiple organ dysfunction syndrome [Unknown]
  - Nephropathy [Unknown]

NARRATIVE: CASE EVENT DATE: 201012
